FAERS Safety Report 16484540 (Version 2)
Quarter: 2019Q3

REPORT INFORMATION
  Report Type: Spontaneous
  Country: US (occurrence: US)
  Receive Date: 20190627
  Receipt Date: 20190715
  Transmission Date: 20191004
  Serious: No
  Sender: FDA-Public Use
  Company Number: US-MERZ NORTH AMERICA, INC.-19MRZ-00278

PATIENT
  Sex: Female

DRUGS (1)
  1. XEOMIN [Suspect]
     Active Substance: INCOBOTULINUMTOXINA
     Indication: PRODUCT USED FOR UNKNOWN INDICATION
     Dosage: UNKNOWN
     Dates: start: 20190424, end: 20190424

REACTIONS (9)
  - Muscle tightness [Unknown]
  - Fatigue [Unknown]
  - Impaired driving ability [Unknown]
  - Muscular weakness [Unknown]
  - Ill-defined disorder [Unknown]
  - Drug ineffective [Unknown]
  - Myalgia [Unknown]
  - Poor quality sleep [Unknown]
  - Emotional distress [Unknown]
